FAERS Safety Report 5864409-1 (Version None)
Quarter: 2008Q3

REPORT INFORMATION
  Report Type: 
  Country: None (occurrence: None)
  Receive Date: 20080829
  Receipt Date: 20080818
  Transmission Date: 20090109
  Serious: Yes (Life-Threatening, Hospitalization)
  Sender: FDA-Public Use
  Company Number: ES-ELI_LILLY_AND_COMPANY-ES200808003393

PATIENT
  Age: 86 Year
  Sex: Female

DRUGS (7)
  1. FORTEO [Suspect]
     Indication: OSTEOPOROSIS
     Dosage: 20 UG, UNKNOWN
     Route: 058
     Dates: start: 20080601, end: 20080806
  2. FORTEO [Suspect]
     Dosage: 20 UG, UNKNOWN
     Route: 058
     Dates: start: 20080818
  3. ARICEPT [Concomitant]
     Indication: DEMENTIA ALZHEIMER'S TYPE
     Dosage: UNK, UNKNOWN
     Route: 065
  4. ASTUDAL [Concomitant]
     Dosage: UNK, UNKNOWN
     Route: 065
  5. LYRICA [Concomitant]
     Dosage: UNK, UNKNOWN
     Route: 065
  6. DIURETICS [Concomitant]
     Dosage: UNK, UNKNOWN
     Route: 065
  7. ANTIHYPERTENSIVES [Concomitant]
     Indication: HYPERTENSION
     Dosage: UNK, UNKNOWN
     Route: 065

REACTIONS (10)
  - ANOREXIA [None]
  - ANXIETY [None]
  - BLADDER SPHINCTER ATONY [None]
  - BONE PAIN [None]
  - DIZZINESS [None]
  - DYSPNOEA [None]
  - PAIN IN EXTREMITY [None]
  - PNEUMONIA [None]
  - URINARY INCONTINENCE [None]
  - WEIGHT DECREASED [None]
